FAERS Safety Report 7280881-7 (Version None)
Quarter: 2011Q1

REPORT INFORMATION
  Report Type: 
  Country: None (occurrence: None)
  Receive Date: 20110207
  Receipt Date: 20110207
  Transmission Date: 20110831
  Serious: Yes (Life-Threatening, Hospitalization)
  Sender: FDA-Public Use
  Company Number: None

PATIENT
  Age: 77 Year
  Sex: Male
  Weight: 86.6 kg

DRUGS (1)
  1. TRIAD ALCOHOL PREP ISOPROPYL ALCOHOL 70% TRIAD GROUP INC [Suspect]
     Dates: start: 20101214, end: 20101220

REACTIONS (1)
  - PRODUCT QUALITY ISSUE [None]
